FAERS Safety Report 9462915 (Version 4)
Quarter: 2013Q4

REPORT INFORMATION
  Report Type: Spontaneous
  Country: JP (occurrence: None)
  Receive Date: 20130814
  Receipt Date: 20131231
  Transmission Date: 20140711
  Serious: Yes (Disabling, Other)
  Sender: FDA-Public Use
  Company Number: ABR_01070_2013

PATIENT
  Age: 79 Year
  Sex: Male
  Weight: 83.7 kg

DRUGS (2)
  1. GLIADEL [Suspect]
     Indication: MALIGNANT GLIOMA
     Dosage: 61.6 MG 1X INTRACEREBRAL
     Dates: start: 20130326, end: 20130326
  2. TEMODAL [Concomitant]

REACTIONS (10)
  - Hemiplegia [None]
  - Convulsion [None]
  - Brain oedema [None]
  - Papilloedema [None]
  - VIth nerve paralysis [None]
  - Condition aggravated [None]
  - Disease complication [None]
  - Hypertension [None]
  - Visual acuity reduced [None]
  - Complex partial seizures [None]
